FAERS Safety Report 8790948 (Version 1)
Quarter: 2012Q4

REPORT INFORMATION
  Report Type: Spontaneous
  Country: GB (occurrence: None)
  Receive Date: 20120910
  Receipt Date: 20120910
  Transmission Date: 20130627
  Serious: Yes (Death)
  Sender: FDA-Public Use
  Company Number: FK201202570

PATIENT
  Age: 29 Year
  Weight: 95 kg

DRUGS (4)
  1. METHOTREXATE [Suspect]
     Indication: PSORIASIS
     Dates: start: 2005, end: 2012
  2. METHOTREXATE [Suspect]
     Indication: PSORIASIS
  3. HUMIRA [Suspect]
     Route: 058
     Dates: end: 201205
  4. HUMIRA [Suspect]

REACTIONS (2)
  - Glioblastoma [None]
  - Hydrocephalus [None]
